FAERS Safety Report 10027563 (Version 2)
Quarter: 2014Q1

REPORT INFORMATION
  Report Type: Spontaneous
  Country: US (occurrence: US)
  Receive Date: 20140321
  Receipt Date: 20140321
  Transmission Date: 20141002
  Serious: No
  Sender: FDA-Public Use
  Company Number: US-MYLANLABS-2013S1028565

PATIENT
  Sex: Female
  Weight: 57.06 kg

DRUGS (3)
  1. ESTRADIOL TRANSDERMAL SYSTEM, USP [Suspect]
     Indication: OESTROGEN REPLACEMENT THERAPY
     Dosage: CHANGE PATCH EVERY WEEK.
     Route: 062
     Dates: start: 2013
  2. ESTRADIOL TRANSDERMAL SYSTEM, USP [Suspect]
     Indication: HORMONE REPLACEMENT THERAPY
     Dosage: CHANGE PATCH EVERY WEEK.
     Route: 062
     Dates: start: 2013
  3. ESTRADIOL TRANSDERMAL SYSTEM, USP [Suspect]
     Indication: FLUSHING
     Dosage: CHANGE PATCH EVERY WEEK.
     Route: 062
     Dates: start: 2013

REACTIONS (4)
  - Application site pain [Not Recovered/Not Resolved]
  - Application site urticaria [Not Recovered/Not Resolved]
  - Application site erythema [Not Recovered/Not Resolved]
  - Application site rash [Recovered/Resolved]
